FAERS Safety Report 18905679 (Version 2)
Quarter: 2021Q2

REPORT INFORMATION
  Report Type: Spontaneous
  Country: IL (occurrence: IL)
  Receive Date: 20210217
  Receipt Date: 20210412
  Transmission Date: 20210717
  Serious: Yes (Other)
  Sender: FDA-Public Use
  Company Number: IL-ALXN-A202102107

PATIENT
  Age: 39 Year
  Sex: Male

DRUGS (3)
  1. AMLODIPINE [Concomitant]
     Active Substance: AMLODIPINE BESYLATE
     Indication: HYPERTENSION
     Dosage: 10 MG, QD
     Route: 065
  2. SOLIRIS [Suspect]
     Active Substance: ECULIZUMAB
     Indication: ATYPICAL HAEMOLYTIC URAEMIC SYNDROME
     Dosage: UNK, UNK
     Route: 065
  3. PREDNISONE. [Concomitant]
     Active Substance: PREDNISONE
     Indication: PRODUCT USED FOR UNKNOWN INDICATION
     Dosage: 1 MG/KG, UNK
     Route: 065

REACTIONS (8)
  - General physical health deterioration [Unknown]
  - Monoclonal gammopathy [Unknown]
  - Retinal neovascularisation [Recovered/Resolved]
  - Haematology test abnormal [Unknown]
  - Myocardial infarction [Unknown]
  - Blindness [Recovered/Resolved]
  - Vitreous haemorrhage [Recovered/Resolved]
  - Renal impairment [Unknown]
